FAERS Safety Report 19453897 (Version 2)
Quarter: 2021Q3

REPORT INFORMATION
  Report Type: Spontaneous
  Country: US (occurrence: US)
  Receive Date: 20210623
  Receipt Date: 20210823
  Transmission Date: 20211014
  Serious: Yes (Other)
  Sender: FDA-Public Use
  Company Number: US-BEH-2021133233

PATIENT
  Age: 64 Year
  Sex: Male

DRUGS (1)
  1. HAEGARDA [Suspect]
     Active Substance: HUMAN C1-ESTERASE INHIBITOR
     Indication: ANGIOEDEMA
     Dosage: 6000 INTERNATIONAL UNIT, BIW
     Route: 058
     Dates: start: 20200423, end: 202108

REACTIONS (9)
  - Angioedema [Unknown]
  - No adverse event [Unknown]
  - Injection site rash [Unknown]
  - Lacrimation increased [Unknown]
  - Injection site urticaria [Unknown]
  - Off label use [Unknown]
  - Hypersensitivity [Unknown]
  - Sneezing [Unknown]
  - Drug ineffective [Unknown]

NARRATIVE: CASE EVENT DATE: 202005
